FAERS Safety Report 6929529-9 (Version None)
Quarter: 2010Q3

REPORT INFORMATION
  Report Type: 
  Country: None (occurrence: None)
  Receive Date: 20100818
  Receipt Date: 20100728
  Transmission Date: 20110219
  Serious: Yes (Death, Life-Threatening)
  Sender: FDA-Public Use
  Company Number: US-BAYER-201035164GPV

PATIENT
  Age: 63 Year
  Sex: Male

DRUGS (12)
  1. ALEMTUZUMAB [Suspect]
     Indication: ACUTE GRAFT VERSUS HOST DISEASE
     Dosage: ESCALATED TO 30 MG/DAY 3 TIMES A WEEK FOR 6 WEEKS, THEN 10 MG/DAY 3 TIMES A WEEK
  2. ALEMTUZUMAB [Suspect]
  3. ALEMTUZUMAB [Suspect]
     Dosage: STARTING DOSE
  4. RITUXIMAB [Suspect]
     Indication: ACUTE GRAFT VERSUS HOST DISEASE
     Dosage: 1 COURSE
  5. RITUXIMAB [Suspect]
  6. DACLIZUMAB [Suspect]
     Indication: ACUTE GRAFT VERSUS HOST DISEASE
     Dosage: 1 COURSE; DAY 1, DAY 4, DAY 8, DAY 15, DAY 22
  7. TACROLIMUS [Suspect]
     Indication: ACUTE GRAFT VERSUS HOST DISEASE
  8. MYCOPHENOLATE MOFETIL [Suspect]
     Indication: ACUTE GRAFT VERSUS HOST DISEASE
     Dosage: UNIT DOSE: 1000 MG
     Route: 048
  9. METHYLPREDNISOLONE [Suspect]
     Indication: ACUTE GRAFT VERSUS HOST DISEASE
     Route: 042
  10. FLUCONAZOLE [Concomitant]
     Indication: INFECTION PROPHYLAXIS
  11. ACYCLOVIR [Concomitant]
     Indication: INFECTION PROPHYLAXIS
  12. PENTAMIDINE ISETHIONATE [Concomitant]
     Indication: INFECTION PROPHYLAXIS

REACTIONS (2)
  - ACANTHAMOEBA INFECTION [None]
  - PSEUDOMONAL SEPSIS [None]
